FAERS Safety Report 15197180 (Version 2)
Quarter: 2018Q3

REPORT INFORMATION
  Report Type: Spontaneous
  Country: US (occurrence: US)
  Receive Date: 20180725
  Receipt Date: 20180807
  Transmission Date: 20181010
  Serious: Yes (Hospitalization)
  Sender: FDA-Public Use
  Company Number: US-PFIZER INC-2018295454

PATIENT
  Age: 52 Year
  Sex: Female

DRUGS (2)
  1. LIDOCAINE HCL [Suspect]
     Active Substance: LIDOCAINE HYDROCHLORIDE
     Indication: BACK PAIN
     Dosage: UNK (BILATERAL IA SACROILIAC JOINT INJECTIONS WITH LIDOCAINE AND TRIAMCINOLONE)
     Route: 014
  2. TRIAMCINOLONE [Concomitant]
     Active Substance: TRIAMCINOLONE
     Indication: BACK PAIN
     Dosage: UNK (BILATERAL IA SACROILIAC JOINT INJECTIONS WITH LIDOCAINE AND TRIAMCINOLONE)
     Route: 014

REACTIONS (2)
  - Chorea [Recovered/Resolved]
  - Toxicity to various agents [Recovered/Resolved]
